FAERS Safety Report 8553102-2 (Version None)
Quarter: 2012Q3

REPORT INFORMATION
  Report Type: 
  Country: None (occurrence: None)
  Receive Date: 20120731
  Receipt Date: 20120726
  Transmission Date: 20120928
  Serious: Yes (Life-Threatening, Hospitalization)
  Sender: FDA-Public Use
  Company Number: BR-NOVOPROD-355338

PATIENT
  Age: 68 Year
  Sex: Male
  Weight: 83.5 kg

DRUGS (2)
  1. VICTOZA [Suspect]
     Indication: TYPE 2 DIABETES MELLITUS
     Dosage: 1.8 MG, QD
     Route: 058
     Dates: start: 20110913, end: 20120628
  2. VICTOZA [Suspect]
     Dosage: 1.8 MG, QD
     Route: 058
     Dates: start: 20120721

REACTIONS (1)
  - ANGINA PECTORIS [None]
